FAERS Safety Report 9026430 (Version 1)
Quarter: 2012Q4

REPORT INFORMATION
  Report Type: Spontaneous
  Country: ES (occurrence: None)
  Receive Date: 20121211
  Receipt Date: 20121211
  Transmission Date: 20130627
  Serious: Yes (Hospitalization)
  Sender: FDA-Public Use
  Company Number: DSA_61299_2012

PATIENT
  Age: 22 Year
  Sex: Female

DRUGS (3)
  1. ELONTRIL [Suspect]
     Indication: PRODUCT USED FOR UNKNOWN INDICATION
     Dosage: (30-60 tablets;  Once;  Not the prescribed amount Oral),  (DF)
(11/26/2012 to 11/26/2012),  (Unknown until not continuing)
     Route: 048
     Dates: start: 20121126, end: 20121126
  2. ZYPREXA [Concomitant]
  3. DULOXETINE [Concomitant]

REACTIONS (5)
  - Intentional overdose [None]
  - Suicide attempt [None]
  - Grand mal convulsion [None]
  - Electrocardiogram QT prolonged [None]
  - Ventricular arrhythmia [None]
